FAERS Safety Report 7501697-X (Version None)
Quarter: 2011Q2

REPORT INFORMATION
  Report Type: 
  Country: None (occurrence: None)
  Receive Date: 20110525
  Receipt Date: 20110516
  Transmission Date: 20111010
  Serious: Yes (Other)
  Sender: FDA-Public Use
  Company Number: GB-AMGEN-GBRSP2011026164

PATIENT
  Sex: Female

DRUGS (2)
  1. ALCOHOL [Interacting]
     Dosage: UNK
  2. ENBREL [Suspect]
     Indication: PRODUCT USED FOR UNKNOWN INDICATION
     Dosage: 50 MG, UNK

REACTIONS (7)
  - SUICIDAL IDEATION [None]
  - FATIGUE [None]
  - HEADACHE [None]
  - FEELING COLD [None]
  - DEPRESSED MOOD [None]
  - ALCOHOL INTERACTION [None]
  - CRYING [None]
